FAERS Safety Report 4404486-8 (Version None)
Quarter: 2004Q3

REPORT INFORMATION
  Report Type: 
  Country: None (occurrence: None)
  Receive Date: 20040721
  Receipt Date: 20040721
  Transmission Date: 20050211
  Serious: Yes (Other)
  Sender: FDA-Public Use
  Company Number: None

PATIENT
  Age: 43 Year
  Sex: Male
  Weight: 91.1 kg

DRUGS (1)
  1. ISOVUE-300 [Suspect]
     Indication: COMPUTERISED TOMOGRAM
     Dosage: 130 MG IV X 1 2ML/SEC
     Route: 042
     Dates: start: 20040622

REACTIONS (2)
  - HEART RATE DECREASED [None]
  - URTICARIA [None]
